FAERS Safety Report 9216091 (Version 1)
Quarter: 2013Q2

REPORT INFORMATION
  Report Type: Spontaneous
  Country: US (occurrence: US)
  Receive Date: 20130408
  Receipt Date: 20130408
  Transmission Date: 20140414
  Serious: Yes (Other)
  Sender: FDA-Public Use
  Company Number: US-TEVA-396346USA

PATIENT
  Age: 45 Year
  Sex: Male

DRUGS (2)
  1. NUVIGIL [Suspect]
     Indication: CIRCADIAN RHYTHM SLEEP DISORDER
  2. GRAPEFRUIT JUICE [Concomitant]

REACTIONS (1)
  - Atrial fibrillation [Recovered/Resolved]
